FAERS Safety Report 4640848-1 (Version None)
Quarter: 2005Q2

REPORT INFORMATION
  Report Type: 
  Country: None (occurrence: None)
  Receive Date: 20050324
  Receipt Date: 20041209
  Transmission Date: 20051028
  Serious: Yes (Other)
  Sender: FDA-Public Use
  Company Number: 210948

PATIENT
  Age: 65 Year
  Sex: Female
  Weight: 68.9 kg

DRUGS (6)
  1. BEVACIZUMAB(BEVACIZUMAB, BEVACIZUMAB) PWDR + SOLVENT,INFUSION SOLN, 10 [Suspect]
     Indication: COLON CANCER
     Dosage: 340 MG, Q2W, INTRAVENOUS
     Route: 042
     Dates: start: 20040907
  2. CAMPTOSAR [Concomitant]
  3. LEUCOVORIN CALCIUM [Concomitant]
  4. FLUOROURACIL [Concomitant]
  5. NEULASTA [Concomitant]
  6. PROCRIT (EPOETIN ALFA) [Concomitant]

REACTIONS (3)
  - FLUSHING [None]
  - INFUSION RELATED REACTION [None]
  - PALPITATIONS [None]
